FAERS Safety Report 5916494-6 (Version None)
Quarter: 2008Q4

REPORT INFORMATION
  Report Type: 
  Country: None (occurrence: None)
  Receive Date: 20081013
  Receipt Date: 20081006
  Transmission Date: 20090506
  Serious: Yes (Other)
  Sender: FDA-Public Use
  Company Number: A0750619A

PATIENT
  Age: 72 Year
  Sex: Female

DRUGS (13)
  1. ADVAIR DISKUS 100/50 [Suspect]
     Indication: ASTHMA
     Route: 055
     Dates: start: 20040101
  2. ALTACE [Concomitant]
  3. ASPIRIN [Concomitant]
  4. ACTOS [Concomitant]
  5. TRICOR [Concomitant]
  6. GLUCOPHAGE [Concomitant]
  7. COMBIVENT [Concomitant]
  8. TOPROL-XL [Concomitant]
  9. HYDROCHLOROTHIAZIDE [Concomitant]
  10. ZETIA [Concomitant]
  11. LESCOL [Concomitant]
  12. SINGULAIR [Concomitant]
  13. DETROL LA [Concomitant]

REACTIONS (7)
  - CHOKING [None]
  - COUGH [None]
  - DYSPHONIA [None]
  - DYSPNOEA [None]
  - FOREIGN BODY ASPIRATION [None]
  - OROPHARYNGEAL PAIN [None]
  - PRODUCT QUALITY ISSUE [None]
